FAERS Safety Report 6811349-7 (Version None)
Quarter: 2010Q2

REPORT INFORMATION
  Report Type: 
  Country: None (occurrence: None)
  Receive Date: 20100630
  Receipt Date: 20100212
  Transmission Date: 20101027
  Serious: No
  Sender: FDA-Public Use
  Company Number: US-AMGEN-KDL394122

PATIENT
  Sex: Female
  Weight: 95.3 kg

DRUGS (23)
  1. PROCRIT [Suspect]
     Indication: RENAL FAILURE CHRONIC
     Dates: start: 20100212
  2. ASPIRIN [Concomitant]
  3. ALLOPURINOL [Concomitant]
  4. PLAVIX [Concomitant]
  5. NORVASC [Concomitant]
  6. ARICEPT [Concomitant]
  7. LEVOTHYROXINE SODIUM [Concomitant]
  8. METOPROLOL TARTRATE [Concomitant]
  9. AMBIEN [Concomitant]
  10. TRAMADOL [Concomitant]
  11. OMEPRAZOLE [Concomitant]
  12. SODIUM BICARBONATE [Concomitant]
  13. EFFEXOR XR [Concomitant]
  14. FERROUS SULFATE TAB [Concomitant]
  15. TRICOR [Concomitant]
  16. AMARYL [Concomitant]
  17. BENADRYL [Concomitant]
  18. PREDNISONE [Concomitant]
  19. ZOCOR [Concomitant]
  20. LASIX [Concomitant]
  21. ROCALTROL [Concomitant]
  22. ACETAMINOPHEN [Concomitant]
  23. NOVOLOG [Concomitant]

REACTIONS (1)
  - EXPIRED DRUG ADMINISTERED [None]
